FAERS Safety Report 4940882-8 (Version None)
Quarter: 2006Q1

REPORT INFORMATION
  Report Type: 
  Country: None (occurrence: None)
  Receive Date: 20060313
  Receipt Date: 20050909
  Transmission Date: 20060701
  Serious: Yes (Hospitalization)
  Sender: FDA-Public Use
  Company Number: FR-BRISTOL-MYERS SQUIBB COMPANY-13105952

PATIENT
  Age: 29 Year
  Sex: Male

DRUGS (4)
  1. REYATAZ [Suspect]
     Indication: HIV INFECTION
     Route: 048
  2. VIDEX [Concomitant]
  3. VIREAD [Concomitant]
  4. NORVIR [Concomitant]

REACTIONS (1)
  - NEPHROLITHIASIS [None]
